FAERS Safety Report 4648245-X (Version None)
Quarter: 2005Q2

REPORT INFORMATION
  Report Type: 
  Country: None (occurrence: None)
  Receive Date: 20050426
  Receipt Date: 20050414
  Transmission Date: 20051028
  Serious: Yes (Other)
  Sender: FDA-Public Use
  Company Number: 2005038278

PATIENT
  Age: 64 Year
  Sex: Male
  Weight: 92.9874 kg

DRUGS (2)
  1. VIAGRA [Suspect]
     Indication: ERECTILE DYSFUNCTION
     Dosage: 50 MG (50 MG, 3 IN 7 D), ORAL; 5 YEARS AGO
     Route: 048
  2. ASPIRIN [Suspect]
     Indication: ILL-DEFINED DISORDER
     Dosage: 1 IN 1 D

REACTIONS (4)
  - DIZZINESS [None]
  - JOINT LIGAMENT RUPTURE [None]
  - PARALYSIS [None]
  - SUBDURAL HAEMATOMA [None]
